FAERS Safety Report 12841174 (Version 1)
Quarter: 2016Q4

REPORT INFORMATION
  Report Type: Spontaneous
  Country: US (occurrence: US)
  Receive Date: 20161012
  Receipt Date: 20161012
  Transmission Date: 20170207
  Serious: No
  Sender: FDA-Public Use
  Company Number: US-NOVOPROD-512812

PATIENT
  Age: 54 Year
  Sex: Female

DRUGS (3)
  1. SAXENDA [Suspect]
     Active Substance: LIRAGLUTIDE
     Indication: OVERWEIGHT
     Dosage: 3 MG, QD
     Route: 058
     Dates: start: 20160801
  2. SAXENDA [Suspect]
     Active Substance: LIRAGLUTIDE
     Indication: BLOOD CHOLESTEROL INCREASED
     Dosage: 2.4 MG, QD
     Route: 058
  3. SAXENDA [Suspect]
     Active Substance: LIRAGLUTIDE
     Indication: GLUCOSE TOLERANCE IMPAIRED

REACTIONS (4)
  - Off label use [Unknown]
  - Abdominal distension [Recovered/Resolved]
  - Drug dose omission [Recovered/Resolved]
  - Drug ineffective [Not Recovered/Not Resolved]
